FAERS Safety Report 4341882-1 (Version None)
Quarter: 2004Q2

REPORT INFORMATION
  Report Type: 
  Country: None (occurrence: None)
  Receive Date: 20040415
  Receipt Date: 20040329
  Transmission Date: 20050107
  Serious: Yes (Death)
  Sender: FDA-Public Use
  Company Number: USA040363554

PATIENT
  Age: 67 Year
  Sex: Female

DRUGS (19)
  1. ZYPREXA [Suspect]
     Indication: BIPOLAR DISORDER
     Dosage: 15 MG AT BEDTIME
     Dates: start: 20030801
  2. ALBUTEROL [Concomitant]
  3. IPRATROPIUM BROMIDE [Concomitant]
  4. ALPRAZOLAM [Concomitant]
  5. FOSAMAX [Concomitant]
  6. CLONAZEPAM [Concomitant]
  7. DEPAKOTE [Concomitant]
  8. ESTRATEST [Concomitant]
  9. FOLIC ACID [Concomitant]
  10. STOOL SOFTENER (DOCUSATE SODIUM) [Concomitant]
  11. FORADIL [Concomitant]
  12. SYNTHROID [Concomitant]
  13. HYPOTHYROID [Concomitant]
  14. CYTOMEL [Concomitant]
  15. ATIVAN [Concomitant]
  16. MORPHINE SULFATE [Concomitant]
  17. PREDNISONE [Concomitant]
  18. SONATAT (ZOLEPLON) [Concomitant]
  19. RISPERDAL [Concomitant]

REACTIONS (1)
  - DEATH [None]
